FAERS Safety Report 8908053 (Version 1)
Quarter: 2012Q4

REPORT INFORMATION
  Report Type: 
  Country: US (occurrence: US)
  Receive Date: 20121113
  Receipt Date: 20121113
  Transmission Date: 20130627
  Serious: No
  Sender: FDA-Public Use
  Company Number: US-AMGEN-USASP2012010138

PATIENT
  Sex: Female

DRUGS (14)
  1. ENBREL [Suspect]
     Indication: PRODUCT USED FOR UNKNOWN INDICATION
     Dosage: 50 mg, qwk
  2. FOSAMAX [Concomitant]
  3. PLAQUENIL                          /00072602/ [Concomitant]
  4. PILOCARPINE [Concomitant]
  5. METHOTREXATE [Concomitant]
  6. NEURONTIN [Concomitant]
  7. ESTRADERM [Concomitant]
  8. TRAMADOL [Concomitant]
  9. VITAMIN D /00107901/ [Concomitant]
  10. VITAMIN B12                        /00056201/ [Concomitant]
  11. FLEXERIL                           /00428402/ [Concomitant]
  12. CALCIUM + VIT D [Concomitant]
  13. FOLIC ACID [Concomitant]
  14. TYLENOL /00020001/ [Concomitant]

REACTIONS (1)
  - Therapeutic response decreased [Unknown]
